FAERS Safety Report 7930888-9 (Version None)
Quarter: 2011Q4

REPORT INFORMATION
  Report Type: 
  Country: None (occurrence: None)
  Receive Date: 20111108
  Receipt Date: 20101110
  Transmission Date: 20120403
  Serious: Yes (Other)
  Sender: FDA-Public Use
  Company Number: PHHY2010US67664

PATIENT
  Age: 48 Year
  Sex: Female
  Weight: 79 kg

DRUGS (2)
  1. REVLIMID [Concomitant]
  2. ZOMETA [Suspect]
     Indication: MULTIPLE MYELOMA
     Dosage: 4 MG/5ML EVERY 4 WEEKS, INTRAVENOUS
     Route: 042
     Dates: start: 20100917

REACTIONS (4)
  - PAIN [None]
  - INFLUENZA LIKE ILLNESS [None]
  - CHILLS [None]
  - PYREXIA [None]
